FAERS Safety Report 7644428-5 (Version None)
Quarter: 2011Q3

REPORT INFORMATION
  Report Type: 
  Country: None (occurrence: None)
  Receive Date: 20110729
  Receipt Date: 20110726
  Transmission Date: 20111222
  Serious: Yes (Hospitalization)
  Sender: FDA-Public Use
  Company Number: US-ROCHE-592905

PATIENT
  Sex: Female
  Weight: 118 kg

DRUGS (19)
  1. DOCETAXEL [Suspect]
     Dosage: FORM: VIALS; TOTAL DOSE: 172; LAST DOSE PRIOR TO EVENT ON 9 OCT 08
     Route: 042
     Dates: start: 20081009
  2. KYTRIL [Concomitant]
     Dates: start: 20081017
  3. XANAX [Concomitant]
     Dates: start: 20030101
  4. NASONEX [Concomitant]
     Dates: start: 20020101
  5. KYTRIL [Concomitant]
     Dates: start: 20081016
  6. CARBOPLATIN [Suspect]
     Dosage: DOSAGE: 6 AUC; TOTAL DOSE 1280 MG; FORM VIAL; LAST DOSE PRIOR TO EVENT ON 9 OCT 08.
     Route: 042
     Dates: start: 20081009
  7. ADVAIR DISKUS 100/50 [Concomitant]
     Dates: start: 19980101
  8. SYNTHROID [Concomitant]
     Dates: start: 20010901
  9. PAXIL [Concomitant]
     Dates: start: 20070401
  10. LOMOTIL [Concomitant]
     Dates: start: 20081016
  11. BEVACIZUMAB [Suspect]
     Dosage: TOTAL DOSE: 1770 MG; FORM: VIALS; LAST DOSE PRIOR TO EVENT ON 9 OCT 2008
     Route: 042
     Dates: start: 20081009
  12. AMITRIPTYLINE HCL [Concomitant]
     Dates: start: 20070401
  13. CELLWISE [Concomitant]
     Dates: start: 20070101
  14. TRASTUZUMAB [Suspect]
     Dosage: TOTAL DOSE: 940 MG; FORM : VIALS; LAST DOSE PROR TO EVENT ON 9 OCT 08
     Route: 042
     Dates: start: 20081009
  15. PHENERGAN HCL [Concomitant]
     Dates: start: 20081016
  16. GABAPENTIN [Concomitant]
     Dates: start: 20070401
  17. MULTI-VITAMIN [Concomitant]
     Dates: start: 20071001
  18. ESTRAVAL [Concomitant]
     Dates: start: 20071001
  19. ESTRAVAL [Concomitant]
     Dates: start: 20080401

REACTIONS (8)
  - HYPOKALAEMIA [None]
  - PNEUMONIA [None]
  - OESOPHAGITIS [None]
  - DIVERTICULITIS [None]
  - HAEMOGLOBIN DECREASED [None]
  - CHEST PAIN [None]
  - WHITE BLOOD CELL COUNT DECREASED [None]
  - OROPHARYNGEAL PAIN [None]
